FAERS Safety Report 5910769-2 (Version None)
Quarter: 2008Q4

REPORT INFORMATION
  Report Type: 
  Country: None (occurrence: None)
  Receive Date: 20081007
  Receipt Date: 20080424
  Transmission Date: 20090506
  Serious: No
  Sender: FDA-Public Use
  Company Number: US-ASTRAZENECA-2008UW08461

PATIENT
  Age: 76 Year
  Sex: Female

DRUGS (1)
  1. ARIMIDEX [Suspect]
     Route: 048
     Dates: start: 20050101

REACTIONS (5)
  - ALOPECIA [None]
  - DEPRESSION [None]
  - HOT FLUSH [None]
  - MUSCLE SPASMS [None]
  - OSTEOPOROSIS [None]
